FAERS Safety Report 6121677-9 (Version None)
Quarter: 2009Q1

REPORT INFORMATION
  Report Type: 
  Country: None (occurrence: None)
  Receive Date: 20090317
  Receipt Date: 20090306
  Transmission Date: 20090719
  Serious: Yes (Death)
  Sender: FDA-Public Use
  Company Number: GB-SANOFI-SYNTHELABO-A01200902523

PATIENT
  Age: 83 Year
  Sex: Female

DRUGS (2)
  1. PLAVIX [Suspect]
     Indication: DRUG USE FOR UNKNOWN INDICATION
     Dosage: PRESCRIBED 75MG DAILY FOR TWO WEEKS
     Route: 048
  2. PLAVIX [Suspect]
     Dosage: PRESCRIBED 75MG DAILY FOR TWO WEEKS
     Route: 048

REACTIONS (2)
  - DEATH [None]
  - OVERDOSE [None]
